FAERS Safety Report 12842298 (Version 2)
Quarter: 2016Q4

REPORT INFORMATION
  Report Type: Spontaneous
  Country: FR (occurrence: FR)
  Receive Date: 20161013
  Receipt Date: 20161111
  Transmission Date: 20170207
  Serious: Yes (Hospitalization)
  Sender: FDA-Public Use
  Company Number: FR-ROCHE-1841365

PATIENT
  Age: 48 Year
  Sex: Female

DRUGS (21)
  1. FLUDARA [Suspect]
     Active Substance: FLUDARABINE PHOSPHATE
     Indication: NON-HODGKIN^S LYMPHOMA
     Route: 042
     Dates: start: 20160816
  2. FLUDARA [Suspect]
     Active Substance: FLUDARABINE PHOSPHATE
     Route: 042
     Dates: start: 20160719
  3. ZELITREX [Suspect]
     Active Substance: VALACYCLOVIR HYDROCHLORIDE
     Indication: PROPHYLAXIS
     Route: 048
     Dates: start: 20160719, end: 20160903
  4. EMEND [Suspect]
     Active Substance: APREPITANT
     Dosage: ON 17/AUG/2016, 18/JUL/2016
     Route: 048
  5. FLUDARA [Suspect]
     Active Substance: FLUDARABINE PHOSPHATE
     Route: 042
     Dates: start: 20160721
  6. ENDOXAN [Suspect]
     Active Substance: CYCLOPHOSPHAMIDE
     Dosage: ON 17/AUG/2016, 18/AUG/2016, 20/JUL/2016, 21/JUL/2016 (DOSE NOT REPROTED)
     Route: 042
  7. POLARAMINE [Concomitant]
     Active Substance: DEXCHLORPHENIRAMINE MALEATE
     Route: 065
     Dates: start: 20160719
  8. MABTHERA [Suspect]
     Active Substance: RITUXIMAB
     Dosage: ONE INJECTION
     Route: 042
     Dates: start: 20160719
  9. SETOFILM [Concomitant]
     Active Substance: ONDANSETRON
     Route: 048
     Dates: start: 20160816, end: 20160816
  10. FLUDARA [Suspect]
     Active Substance: FLUDARABINE PHOSPHATE
     Route: 042
     Dates: start: 20160818
  11. BACTRIM [Suspect]
     Active Substance: SULFAMETHOXAZOLE\TRIMETHOPRIM
     Indication: PROPHYLAXIS
     Route: 048
     Dates: start: 20160719, end: 20160902
  12. SETOFILM [Concomitant]
     Active Substance: ONDANSETRON
     Route: 048
     Dates: start: 20160719
  13. POLARAMINE [Concomitant]
     Active Substance: DEXCHLORPHENIRAMINE MALEATE
     Route: 048
     Dates: start: 20160816, end: 20160816
  14. MABTHERA [Suspect]
     Active Substance: RITUXIMAB
     Indication: NON-HODGKIN^S LYMPHOMA
     Route: 042
     Dates: start: 20160816
  15. FLUDARA [Suspect]
     Active Substance: FLUDARABINE PHOSPHATE
     Route: 042
     Dates: start: 20160720
  16. ENDOXAN [Suspect]
     Active Substance: CYCLOPHOSPHAMIDE
     Route: 042
     Dates: start: 20160719
  17. SOLUPRED (FRANCE) [Concomitant]
     Active Substance: PREDNISOLONE
     Dosage: ON 20-JUL-2016,16-AUG-2016, 18-AUG-2016 (5 MG)
     Route: 048
     Dates: start: 20160719
  18. NEUPOGEN [Concomitant]
     Active Substance: FILGRASTIM
  19. ENDOXAN [Suspect]
     Active Substance: CYCLOPHOSPHAMIDE
     Indication: NON-HODGKIN^S LYMPHOMA
     Route: 042
     Dates: start: 20160816
  20. EMEND [Suspect]
     Active Substance: APREPITANT
     Indication: PROPHYLAXIS OF NAUSEA AND VOMITING
     Route: 048
     Dates: start: 20160719
  21. EMEND [Suspect]
     Active Substance: APREPITANT
     Route: 048
     Dates: start: 20160720

REACTIONS (3)
  - Off label use [Unknown]
  - Product use issue [Unknown]
  - Drug reaction with eosinophilia and systemic symptoms [Recovering/Resolving]

NARRATIVE: CASE EVENT DATE: 20160826
